FAERS Safety Report 5390107-7 (Version None)
Quarter: 2007Q3

REPORT INFORMATION
  Report Type: 
  Country: None (occurrence: None)
  Receive Date: 20070718
  Receipt Date: 20070709
  Transmission Date: 20080115
  Serious: Yes (Hospitalization)
  Sender: FDA-Public Use
  Company Number: B0477236A

PATIENT
  Age: 56 Year
  Sex: Male

DRUGS (13)
  1. VALTREX [Suspect]
     Indication: HERPES ZOSTER
     Dosage: 1000MG THREE TIMES PER DAY
     Route: 048
     Dates: start: 20070618, end: 20070620
  2. PREDNISOLONE [Concomitant]
     Indication: LUNG NEOPLASM MALIGNANT
     Dosage: 4MG PER DAY
     Route: 048
  3. MYONAL [Concomitant]
     Indication: LUNG NEOPLASM MALIGNANT
     Dosage: 450MG PER DAY
     Route: 048
  4. ASPIRIN [Concomitant]
     Indication: LUNG NEOPLASM MALIGNANT
     Dosage: 100MG PER DAY
     Route: 048
  5. SELBEX [Concomitant]
     Indication: LUNG NEOPLASM MALIGNANT
     Dosage: 150MG PER DAY
     Route: 048
  6. ALESION [Concomitant]
     Indication: PRURITUS
     Dosage: 20MG PER DAY
     Route: 048
  7. PERSANTIN [Concomitant]
     Indication: LUNG NEOPLASM MALIGNANT
     Dosage: 300MG PER DAY
     Route: 048
  8. PROMAC [Concomitant]
     Indication: LUNG NEOPLASM MALIGNANT
     Dosage: 150MG PER DAY
     Route: 048
  9. AMLODIN [Concomitant]
     Indication: HYPERTENSION
     Dosage: 2.5MG PER DAY
     Route: 048
  10. GASTER [Concomitant]
     Indication: LUNG NEOPLASM MALIGNANT
     Dosage: 20MG PER DAY
     Route: 048
  11. LOXONIN [Concomitant]
     Indication: LUNG NEOPLASM MALIGNANT
     Dosage: 180MG PER DAY
     Route: 048
  12. CELESTAMINE [Concomitant]
     Indication: PRURITUS
     Route: 048
     Dates: start: 20070611
  13. OZAGREL [Concomitant]
     Route: 042

REACTIONS (7)
  - CEREBELLAR ATAXIA [None]
  - DIZZINESS [None]
  - DYSARTHRIA [None]
  - DYSLALIA [None]
  - FACIAL PALSY [None]
  - NAUSEA [None]
  - RENAL IMPAIRMENT [None]
